FAERS Safety Report 21050382 (Version 16)
Quarter: 2024Q1

REPORT INFORMATION
  Report Type: Spontaneous
  Country: JP (occurrence: JP)
  Receive Date: 20220707
  Receipt Date: 20240307
  Transmission Date: 20240410
  Serious: Yes (Other)
  Sender: FDA-Public Use
  Company Number: JP-BRISTOL-MYERS SQUIBB COMPANY-BMS-2022-015941

PATIENT
  Age: 46 Year
  Sex: Male

DRUGS (3)
  1. YERVOY [Suspect]
     Active Substance: IPILIMUMAB
     Indication: Squamous cell carcinoma of lung
     Route: 041
     Dates: start: 20210810
  2. OPDIVO [Suspect]
     Active Substance: NIVOLUMAB
     Indication: Squamous cell carcinoma of lung
     Route: 041
     Dates: start: 20210810
  3. PREDNISOLONE [Concomitant]
     Active Substance: PREDNISOLONE
     Indication: Product used for unknown indication
     Dosage: 20 UNK
     Dates: start: 20210819, end: 20211110

REACTIONS (8)
  - Malaise [Unknown]
  - Pyrexia [Recovering/Resolving]
  - Hepatic steatosis [Recovering/Resolving]
  - Type 2 diabetes mellitus [Recovering/Resolving]
  - Arthralgia [Unknown]
  - Thirst [Unknown]
  - Decreased appetite [Unknown]
  - Weight increased [Unknown]

NARRATIVE: CASE EVENT DATE: 20211117
